FAERS Safety Report 12969177 (Version 1)
Quarter: 2016Q4

REPORT INFORMATION
  Report Type: Spontaneous
  Country: US (occurrence: US)
  Receive Date: 20161123
  Receipt Date: 20161123
  Transmission Date: 20170207
  Serious: No
  Sender: FDA-Public Use
  Company Number: US-BAYER-2016-222305

PATIENT
  Age: 76 Year
  Sex: Female
  Weight: 81.18 kg

DRUGS (14)
  1. TRAZODONE [Concomitant]
     Active Substance: TRAZODONE HYDROCHLORIDE
     Dosage: 1 DF, QID
     Route: 048
  2. CRESTOR [Concomitant]
     Active Substance: ROSUVASTATIN CALCIUM
     Dosage: 1 DF, QD
     Route: 048
  3. ALEVE [Suspect]
     Active Substance: NAPROXEN SODIUM
     Indication: HEADACHE
     Dosage: UNK UNK, ONCE
  4. IRBESARTAN. [Concomitant]
     Active Substance: IRBESARTAN
     Dosage: 1 DF, QD
     Route: 048
  5. METFORMIN [Concomitant]
     Active Substance: METFORMIN HYDROCHLORIDE
     Dosage: 1 DF, QD AT BED TIME
     Route: 048
  6. LYRICA [Concomitant]
     Active Substance: PREGABALIN
  7. TORASEMIDE [Concomitant]
     Active Substance: TORSEMIDE
     Dosage: 2 DF, BID
     Route: 048
  8. DULOXETINE. [Concomitant]
     Active Substance: DULOXETINE
     Dosage: 1 DF, QD
     Route: 048
  9. MULTIVITAMIN [Concomitant]
     Active Substance: VITAMINS
     Dosage: 1 DF, QD
     Route: 048
  10. AMLODIPINE [Concomitant]
     Active Substance: AMLODIPINE BESYLATE
     Dosage: 1 DF, QD
     Route: 048
  11. GLIMEPIRIDE. [Concomitant]
     Active Substance: GLIMEPIRIDE
     Dosage: 1 DF, TID
  12. ASACOL [Concomitant]
     Active Substance: MESALAMINE
     Indication: DIARRHOEA
     Dosage: 400 MG, QID
     Route: 048
  13. ALEVE [Suspect]
     Active Substance: NAPROXEN SODIUM
     Indication: LIMB DISCOMFORT
     Dosage: 1 DF, QID
  14. POTASSIUM [Concomitant]
     Active Substance: POTASSIUM
     Dosage: 1 DF, TID
     Route: 048

REACTIONS (6)
  - Medication error [None]
  - Product use issue [None]
  - Hypoaesthesia [Unknown]
  - Limb discomfort [Unknown]
  - Patient dissatisfaction with treatment [Unknown]
  - Pain in extremity [None]

NARRATIVE: CASE EVENT DATE: 201506
